FAERS Safety Report 24564796 (Version 1)
Quarter: 2024Q4

REPORT INFORMATION
  Report Type: Spontaneous
  Country: US (occurrence: US)
  Receive Date: 20241030
  Receipt Date: 20241030
  Transmission Date: 20250114
  Serious: Yes (Other)
  Sender: AMGEN
  Company Number: US-AMGEN-USASP2024211106

PATIENT
  Age: 70 Year
  Sex: Female

DRUGS (7)
  1. IMDELLTRA [Suspect]
     Active Substance: TARLATAMAB-DLLE
     Indication: Small cell lung cancer extensive stage
     Dosage: 1 MILLIGRAM FIRST DOSE, STEP UP PHASE - ONCE A WEEK CYCLE 1 DAY 1
     Route: 040
     Dates: start: 20240925, end: 20240925
  2. IMDELLTRA [Suspect]
     Active Substance: TARLATAMAB-DLLE
     Dosage: UNK, CYCLE 1 DAY 8
     Route: 040
     Dates: start: 20241015, end: 20241015
  3. IMDELLTRA [Suspect]
     Active Substance: TARLATAMAB-DLLE
     Dosage: UNK, CYCLE 1 DAY 15
     Route: 040
     Dates: start: 20241022
  4. PERCOCET [Concomitant]
     Active Substance: ACETAMINOPHEN\OXYCODONE HYDROCHLORIDE
     Dosage: UNK
  5. MIRALAX [Concomitant]
     Active Substance: POLYETHYLENE GLYCOL 3350
     Dosage: UNK
  6. IRON [Concomitant]
     Active Substance: IRON
     Dosage: UNK
  7. VITAMIN B12 [Concomitant]
     Active Substance: CYANOCOBALAMIN

REACTIONS (7)
  - Neutropenia [Recovered/Resolved]
  - Food intolerance [Recovered/Resolved]
  - Headache [Recovered/Resolved]
  - Dysgeusia [Not Recovered/Not Resolved]
  - Aspartate aminotransferase increased [Recovered/Resolved]
  - Alanine aminotransferase increased [Recovered/Resolved]
  - Emotional distress [Recovered/Resolved]

NARRATIVE: CASE EVENT DATE: 20241003
